FAERS Safety Report 8422490-X (Version None)
Quarter: 2012Q2

REPORT INFORMATION
  Report Type: 
  Country: None (occurrence: None)
  Receive Date: 20120608
  Receipt Date: 20120525
  Transmission Date: 20120825
  Serious: Yes (Hospitalization, Other)
  Sender: FDA-Public Use
  Company Number: US-ARROW GEN-2012-09284

PATIENT
  Sex: Male
  Weight: 122 kg

DRUGS (1)
  1. FENTANYL-50 [Suspect]
     Indication: BACK INJURY
     Dosage: 50MCG, 72 HRS
     Route: 062
     Dates: start: 20120521

REACTIONS (3)
  - DRUG INEFFECTIVE [None]
  - FEELING ABNORMAL [None]
  - TREMOR [None]
